FAERS Safety Report 4590060-X (Version None)
Quarter: 2005Q1

REPORT INFORMATION
  Report Type: 
  Country: None (occurrence: None)
  Receive Date: 20050217
  Receipt Date: 20050217
  Transmission Date: 20050727
  Serious: Yes (Death)
  Sender: FDA-Public Use
  Company Number: None

PATIENT
  Age: 74 Year
  Sex: Male

DRUGS (3)
  1. WELLBUTRIN XL [Suspect]
     Indication: MAJOR DEPRESSION
     Dosage: 1 TAB QD
     Dates: start: 20041201, end: 20050129
  2. GLUCOVANCE [Concomitant]
  3. LOTENSIN [Concomitant]

REACTIONS (6)
  - AGITATION [None]
  - COMPLETED SUICIDE [None]
  - CONFUSIONAL STATE [None]
  - GUN SHOT WOUND [None]
  - HALLUCINATION [None]
  - VISUAL DISTURBANCE [None]
